FAERS Safety Report 5905120-8 (Version None)
Quarter: 2008Q3

REPORT INFORMATION
  Report Type: 
  Country: None (occurrence: None)
  Receive Date: 20080909
  Receipt Date: 20071106
  Transmission Date: 20090109
  Serious: Yes (Hospitalization)
  Sender: FDA-Public Use
  Company Number: 163-20785-07091586

PATIENT
  Age: 69 Year
  Sex: Female

DRUGS (6)
  1. THALOMID [Suspect]
     Indication: MULTIPLE MYELOMA
     Dosage: 100 MG, QHS, ORAL ; 50 MG, ORAL ; ORAL
     Route: 048
     Dates: start: 20050329, end: 20050101
  2. THALOMID [Suspect]
     Indication: MULTIPLE MYELOMA
     Dosage: 100 MG, QHS, ORAL ; 50 MG, ORAL ; ORAL
     Route: 048
     Dates: end: 20050303
  3. THALOMID [Suspect]
     Indication: MULTIPLE MYELOMA
     Dosage: 100 MG, QHS, ORAL ; 50 MG, ORAL ; ORAL
     Route: 048
     Dates: start: 20050104
  4. DECADRON [Concomitant]
  5. MULTIPLE VITAMINS (MULTIPLE VITAMINS) [Concomitant]
  6. COUMADIN [Concomitant]

REACTIONS (2)
  - DEEP VEIN THROMBOSIS [None]
  - NEUROPATHY PERIPHERAL [None]
